FAERS Safety Report 7364579-2 (Version None)
Quarter: 2011Q1

REPORT INFORMATION
  Report Type: 
  Country: None (occurrence: None)
  Receive Date: 20110316
  Receipt Date: 20110316
  Transmission Date: 20110831
  Serious: Yes (Disabling)
  Sender: FDA-Public Use
  Company Number: None

PATIENT
  Age: 74 Year
  Sex: Male
  Weight: 83.9154 kg

DRUGS (2)
  1. DILAUDID [Suspect]
     Indication: RHEUMATOID ARTHRITIS
     Dosage: 1 TAB TWICE DAY EVERYDAY
     Dates: start: 20101124, end: 20110223
  2. DILAUDID [Suspect]
     Indication: PAIN IN EXTREMITY
     Dosage: 1 TAB TWICE DAY EVERYDAY
     Dates: start: 20101124, end: 20110223

REACTIONS (1)
  - DECREASED ACTIVITY [None]
